FAERS Safety Report 19980266 (Version 2)
Quarter: 2021Q4

REPORT INFORMATION
  Report Type: Spontaneous
  Country: US (occurrence: US)
  Receive Date: 20211021
  Receipt Date: 20211027
  Transmission Date: 20220303
  Serious: No
  Sender: FDA-Public Use
  Company Number: US-SANOFI-00813072

PATIENT
  Age: 11 Year
  Sex: Female

DRUGS (1)
  1. DUPIXENT [Suspect]
     Active Substance: DUPILUMAB
     Dosage: 1 DF, 1X
     Route: 058
     Dates: start: 20210930, end: 20210930

REACTIONS (6)
  - Injection site pain [Unknown]
  - Incorrect dose administered [Unknown]
  - Product preparation error [Unknown]
  - Vomiting [Unknown]
  - Nausea [Unknown]
  - Wrong device used [Unknown]

NARRATIVE: CASE EVENT DATE: 20210930
